FAERS Safety Report 6279973-0 (Version None)
Quarter: 2009Q3

REPORT INFORMATION
  Report Type: 
  Country: None (occurrence: None)
  Receive Date: 20090723
  Receipt Date: 20090622
  Transmission Date: 20100115
  Serious: Yes (Other)
  Sender: FDA-Public Use
  Company Number: TR-ELI_LILLY_AND_COMPANY-TR200907003698

PATIENT
  Sex: Female

DRUGS (3)
  1. HUMULIN 70/30 [Suspect]
     Indication: GESTATIONAL DIABETES
     Dosage: 24 IU, DAILY (1/D)
     Route: 058
     Dates: start: 20090501
  2. ELEVIT [Concomitant]
  3. PROGESTIN INJ [Concomitant]
     Indication: ABORTION THREATENED
     Dosage: UNK, 3/D

REACTIONS (2)
  - ANTEPARTUM HAEMORRHAGE [None]
  - DRUG EXPOSURE DURING PREGNANCY [None]
